FAERS Safety Report 15088510 (Version 2)
Quarter: 2018Q3

REPORT INFORMATION
  Report Type: Report from Study
  Country: US (occurrence: US)
  Receive Date: 20180629
  Receipt Date: 20180905
  Transmission Date: 20181010
  Serious: Yes (Hospitalization, Other)
  Sender: FDA-Public Use
  Company Number: US-AMGEN-USASL2018086291

PATIENT
  Age: 79 Year
  Sex: Female

DRUGS (1)
  1. REPATHA [Suspect]
     Active Substance: EVOLOCUMAB
     Indication: HYPERLIPIDAEMIA
     Dosage: 140 MG, Q2WK
     Route: 065

REACTIONS (11)
  - Limb injury [Unknown]
  - Sleep disorder due to a general medical condition [Unknown]
  - Tendon injury [Recovered/Resolved]
  - Bronchitis [Unknown]
  - Pneumonia [Unknown]
  - Lower limb fracture [Unknown]
  - Blood glucose abnormal [Unknown]
  - Toothache [Unknown]
  - Joint injury [Unknown]
  - Fall [Unknown]
  - Oropharyngeal pain [Unknown]

NARRATIVE: CASE EVENT DATE: 2018
